FAERS Safety Report 6861322-8 (Version None)
Quarter: 2010Q3

REPORT INFORMATION
  Report Type: 
  Country: None (occurrence: None)
  Receive Date: 20100715
  Receipt Date: 20100630
  Transmission Date: 20110219
  Serious: Yes (Hospitalization)
  Sender: FDA-Public Use
  Company Number: 2010AP001351

PATIENT
  Age: 39 Year
  Sex: Female

DRUGS (8)
  1. CITALOPRAM HYDROBROMIDE [Suspect]
     Indication: DEPRESSED MOOD
     Dosage: 10 MG, PO
     Route: 048
  2. CARBAMAZEPINE [Suspect]
     Indication: EPILEPSY
     Dosage: 700 MG, PO
     Route: 048
  3. BECLOMETHASONE DIPROPIONATE [Concomitant]
  4. CODEINE PHOSPHATE [Concomitant]
  5. PARACETAMOL [Concomitant]
  6. DICLOFENAC [Concomitant]
  7. ALBUTEROL [Concomitant]
  8. TEMAZEPAM [Concomitant]

REACTIONS (5)
  - CONFUSIONAL STATE [None]
  - CONVULSION [None]
  - DELUSION [None]
  - HYPONATRAEMIA [None]
  - TREATMENT NONCOMPLIANCE [None]
